FAERS Safety Report 18918916 (Version 1)
Quarter: 2021Q1

REPORT INFORMATION
  Report Type: Spontaneous
  Country: FR (occurrence: FR)
  Receive Date: 20210220
  Receipt Date: 20210220
  Transmission Date: 20210420
  Serious: Yes (Hospitalization)
  Sender: FDA-Public Use
  Company Number: FR-ACCORD-217543

PATIENT
  Age: 65 Year
  Sex: Male
  Weight: 95 kg

DRUGS (1)
  1. SPIRONOLACTONE. [Suspect]
     Active Substance: SPIRONOLACTONE
     Indication: HYPERTENSION
     Route: 048
     Dates: start: 20201126, end: 202012

REACTIONS (1)
  - Hepatitis acute [Recovering/Resolving]

NARRATIVE: CASE EVENT DATE: 20201210
